FAERS Safety Report 4948824-6 (Version None)
Quarter: 2006Q1

REPORT INFORMATION
  Report Type: 
  Country: None (occurrence: None)
  Receive Date: 20060321
  Receipt Date: 20060309
  Transmission Date: 20060701
  Serious: Yes (Hospitalization)
  Sender: FDA-Public Use
  Company Number: JP-JNJFOC-20060303664

PATIENT
  Age: 36 Year
  Sex: Male

DRUGS (2)
  1. HALOMONTH [Suspect]
     Indication: PERSECUTORY DELUSION
     Route: 030
  2. QUETIAPINE FUMARATE [Concomitant]
     Route: 048

REACTIONS (3)
  - BLOOD CREATINE PHOSPHOKINASE INCREASED [None]
  - TRANSAMINASES INCREASED [None]
  - WATER INTOXICATION [None]
